FAERS Safety Report 7762671-1 (Version None)
Quarter: 2011Q3

REPORT INFORMATION
  Report Type: 
  Country: None (occurrence: None)
  Receive Date: 20110920
  Receipt Date: 20110912
  Transmission Date: 20111222
  Serious: Yes (Other)
  Sender: FDA-Public Use
  Company Number: DE-JNJFOC-20110904493

PATIENT
  Age: 58 Year
  Sex: Female

DRUGS (3)
  1. FLUPENTIXOL [Concomitant]
     Route: 065
  2. RISPERDAL CONSTA [Suspect]
     Indication: SCHIZOPHRENIA
     Route: 030
     Dates: start: 20110704
  3. ZOPICLON [Concomitant]
     Route: 065

REACTIONS (2)
  - LYMPHOCYTE COUNT DECREASED [None]
  - WHITE BLOOD CELL COUNT DECREASED [None]
